FAERS Safety Report 10248941 (Version 1)
Quarter: 2014Q2

REPORT INFORMATION
  Report Type: Spontaneous
  Country: US (occurrence: US)
  Receive Date: 20140620
  Receipt Date: 20140620
  Transmission Date: 20141212
  Serious: No
  Sender: FDA-Public Use
  Company Number: US-009507513-1406USA004589

PATIENT
  Age: 20 Year
  Sex: Female
  Weight: 95.24 kg

DRUGS (1)
  1. NEXPLANON [Suspect]
     Indication: CONTRACEPTION
     Dosage: 1 DF (1 SINGLE ROD)
     Route: 059
     Dates: start: 20140605

REACTIONS (3)
  - Implant site swelling [Recovering/Resolving]
  - Implant site pain [Recovering/Resolving]
  - Implant site bruising [Recovering/Resolving]
